FAERS Safety Report 4678278-9 (Version None)
Quarter: 2005Q2

REPORT INFORMATION
  Report Type: 
  Country: None (occurrence: None)
  Receive Date: 20050601
  Receipt Date: 20050523
  Transmission Date: 20051028
  Serious: Yes (Hospitalization)
  Sender: FDA-Public Use
  Company Number: PHRM2005FR01622

PATIENT
  Age: 89 Year
  Sex: Male

DRUGS (6)
  1. TAREG [Suspect]
     Dosage: 120 MG/DAY
     Route: 048
     Dates: end: 20050416
  2. CORDARONE [Concomitant]
     Dosage: 500 MG/WEEK
     Route: 048
     Dates: start: 20040213
  3. PREVISCAN [Concomitant]
     Route: 048
  4. ADANCOR [Concomitant]
     Route: 048
  5. CORVASAL [Suspect]
     Dosage: 12 MG/DAY
     Route: 048
     Dates: end: 20050416
  6. SOTALOL HCL [Suspect]
     Dosage: 80 MG/DAY
     Route: 048
     Dates: start: 20041122, end: 20050416

REACTIONS (8)
  - ATRIAL FIBRILLATION [None]
  - ATRIOVENTRICULAR BLOCK FIRST DEGREE [None]
  - CHEST PAIN [None]
  - LOSS OF CONSCIOUSNESS [None]
  - MALAISE [None]
  - SINUS BRADYCARDIA [None]
  - SUPRAVENTRICULAR EXTRASYSTOLES [None]
  - VOMITING [None]
